FAERS Safety Report 4396632-X (Version None)
Quarter: 2004Q3

REPORT INFORMATION
  Report Type: 
  Country: None (occurrence: None)
  Receive Date: 20040713
  Receipt Date: 20040713
  Transmission Date: 20050211
  Serious: Yes (Other)
  Sender: FDA-Public Use
  Company Number: None

PATIENT
  Age: 65 Year
  Sex: Male
  Weight: 61.7 kg

DRUGS (1)
  1. LISINOPRIL [Suspect]
     Indication: HYPERTENSION
     Dosage: 10 MG, 10 MG QD  ORAL
     Route: 048
     Dates: start: 20040618, end: 20040621

REACTIONS (1)
  - ANGIONEUROTIC OEDEMA [None]
